FAERS Safety Report 6428977-3 (Version None)
Quarter: 2009Q4

REPORT INFORMATION
  Report Type: 
  Country: None (occurrence: None)
  Receive Date: 20091102
  Receipt Date: 20091021
  Transmission Date: 20100525
  Serious: Yes (Hospitalization)
  Sender: FDA-Public Use
  Company Number: 230013J09USA

PATIENT
  Age: 47 Year
  Sex: Male
  Weight: 113 kg

DRUGS (8)
  1. REBIF [Suspect]
     Indication: MULTIPLE SCLEROSIS
     Dosage: 44 MCG, 3 IN 1 WEEKS, SUBCUTANEOUS
     Route: 058
     Dates: start: 20090125
  2. STEROIDS (CORTICOSTEROID NOS) [Suspect]
     Indication: TREMOR
  3. OXYCODONE WITH ACETAMINOPHEN (OXYCODONE/APAP) [Concomitant]
  4. OXYCODONE HCL [Concomitant]
  5. PROZAC [Concomitant]
  6. METOPROLOL (METOPROLOL /00376901/) [Concomitant]
  7. LISINOPRIL AND HYDROCHLOROTHIAZIDE (PRINZIDE /00977901/) [Concomitant]
  8. TESTOSTERONE [Concomitant]

REACTIONS (6)
  - DISEASE PROGRESSION [None]
  - INFLUENZA LIKE ILLNESS [None]
  - INJECTION SITE PAIN [None]
  - MULTIPLE SCLEROSIS [None]
  - PERICARDITIS [None]
  - TREMOR [None]
